FAERS Safety Report 10914672 (Version 2)
Quarter: 2015Q1

REPORT INFORMATION
  Report Type: Report from Study
  Country: IT (occurrence: IT)
  Receive Date: 20150313
  Receipt Date: 20150317
  Transmission Date: 20150721
  Serious: Yes (Death, Hospitalization, Other)
  Sender: FDA-Public Use
  Company Number: PHHO2013IT013071

PATIENT
  Age: 61 Year
  Sex: Male
  Weight: 85.8 kg

DRUGS (13)
  1. LUVION [Concomitant]
     Active Substance: CANRENONE
     Indication: BLOOD POTASSIUM DECREASED
  2. ENAPREN [Concomitant]
     Active Substance: ENALAPRIL MALEATE
     Indication: CARDIAC FAILURE CHRONIC
     Dosage: 5 MG, QOD (1/2 DAY)
     Route: 048
     Dates: start: 20131016
  3. ALISKIREN [Suspect]
     Active Substance: ALISKIREN
     Indication: CARDIAC FAILURE
     Dosage: UNK
     Route: 048
     Dates: start: 20100608, end: 20131007
  4. RYTMOBETA [Concomitant]
     Active Substance: SOTALOL HYDROCHLORIDE
     Indication: ARRHYTHMIA
     Dosage: 30 MG, (4/ DAY)
     Route: 048
     Dates: start: 20130507
  5. WARFARIN [Concomitant]
     Active Substance: WARFARIN
     Indication: ATRIAL FIBRILLATION
     Dosage: UNK
     Route: 065
     Dates: start: 2008
  6. LASIX [Concomitant]
     Active Substance: FUROSEMIDE
     Indication: CARDIAC FAILURE CHRONIC
     Dosage: 25 MG, 5QD (5/DAY)
     Route: 048
     Dates: start: 20080908
  7. LUVION [Concomitant]
     Active Substance: CANRENONE
     Indication: CARDIAC FAILURE CHRONIC
     Dosage: 25 MG, QD (1/DAY)
     Route: 048
     Dates: start: 20130719
  8. FUROSEMIDE. [Concomitant]
     Active Substance: FUROSEMIDE
     Indication: CARDIAC FAILURE CONGESTIVE
     Dosage: 75 MG
     Route: 065
     Dates: start: 1995
  9. FUROSEMIDE. [Concomitant]
     Active Substance: FUROSEMIDE
     Dosage: 25 MG, TID
     Route: 048
     Dates: start: 20080908
  10. SOTALOL. [Concomitant]
     Active Substance: SOTALOL
     Dosage: 8 MG, (4/DAY)
     Route: 048
     Dates: start: 20130507
  11. CANRENONE [Concomitant]
     Active Substance: CANRENONE
     Indication: CARDIAC FAILURE CHRONIC
     Dosage: 25 MG, BID
     Route: 048
     Dates: start: 20130719
  12. ALLOPURINOL. [Concomitant]
     Active Substance: ALLOPURINOL
     Indication: BLOOD URIC ACID ABNORMAL
     Dosage: 150 MG
     Route: 065
     Dates: start: 2013, end: 20130924
  13. SOTALOL. [Concomitant]
     Active Substance: SOTALOL
     Indication: ARRHYTHMIA
     Dosage: 320 MG
     Route: 065
     Dates: start: 2006

REACTIONS (7)
  - Ventricular fibrillation [Recovered/Resolved]
  - Arrhythmia [Recovered/Resolved]
  - Ventricular tachycardia [Recovered/Resolved]
  - Cardiac arrest [Recovered/Resolved]
  - International normalised ratio increased [Recovered/Resolved]
  - Cardio-respiratory arrest [Fatal]
  - Cardiac failure [Not Recovered/Not Resolved]

NARRATIVE: CASE EVENT DATE: 20130924
